FAERS Safety Report 14251882 (Version 3)
Quarter: 2018Q1

REPORT INFORMATION
  Report Type: Report from Study
  Country: US (occurrence: US)
  Receive Date: 20171205
  Receipt Date: 20180319
  Transmission Date: 20180508
  Serious: Yes (Death, Hospitalization)
  Sender: FDA-Public Use
  Company Number: US-JNJFOC-20171203560

PATIENT
  Age: 81 Year
  Sex: Male

DRUGS (15)
  1. MUCINEX [Concomitant]
     Active Substance: GUAIFENESIN
  2. IMBRUVICA [Suspect]
     Active Substance: IBRUTINIB
     Indication: CHRONIC LYMPHOCYTIC LEUKAEMIA
     Route: 048
     Dates: start: 20171023, end: 2017
  3. NORVASC [Concomitant]
     Active Substance: AMLODIPINE BESYLATE
  4. SINGULAIR [Concomitant]
     Active Substance: MONTELUKAST SODIUM
  5. ALTACE [Concomitant]
     Active Substance: RAMIPRIL
  6. FLONASE [Concomitant]
     Active Substance: FLUTICASONE PROPIONATE
  7. DUONEB [Concomitant]
     Active Substance: ALBUTEROL SULFATE\IPRATROPIUM BROMIDE
  8. ASPIRIN. [Concomitant]
     Active Substance: ASPIRIN
  9. XALATAN [Concomitant]
     Active Substance: LATANOPROST
  10. METOPROLOL SUCCINATE. [Concomitant]
     Active Substance: METOPROLOL SUCCINATE
  11. FLOMAX [Concomitant]
     Active Substance: TAMSULOSIN HYDROCHLORIDE
  12. ANTIVERT [Concomitant]
     Active Substance: MECLIZINE HYDROCHLORIDE
  13. MOBIC [Concomitant]
     Active Substance: MELOXICAM
  14. ZOCOR [Concomitant]
     Active Substance: SIMVASTATIN
  15. ZYRTEC [Concomitant]
     Active Substance: CETIRIZINE HYDROCHLORIDE

REACTIONS (2)
  - Pneumonia [Fatal]
  - Sepsis [Fatal]

NARRATIVE: CASE EVENT DATE: 20171120
